FAERS Safety Report 4615288-1 (Version None)
Quarter: 2005Q1

REPORT INFORMATION
  Report Type: 
  Country: None (occurrence: None)
  Receive Date: 20050317
  Receipt Date: 20050304
  Transmission Date: 20050727
  Serious: Yes (Hospitalization)
  Sender: FDA-Public Use
  Company Number: 2005000336

PATIENT
  Age: 57 Year
  Sex: Female

DRUGS (2)
  1. ERLOTINIB HCL (TABLET) (ERLOTINIB HCL) [Suspect]
     Indication: NON-SMALL CELL LUNG CANCER
     Dosage: SEE IMAGE
     Route: 048
     Dates: start: 20040629, end: 20050107
  2. ERLOTINIB HCL (TABLET) (ERLOTINIB HCL) [Suspect]
     Indication: NON-SMALL CELL LUNG CANCER
     Dosage: SEE IMAGE
     Route: 048
     Dates: start: 20050202, end: 20050214

REACTIONS (17)
  - ANOREXIA [None]
  - BLOOD DISORDER [None]
  - BRONCHOPNEUMONIA [None]
  - COUGH [None]
  - DRY SKIN [None]
  - DYSPHONIA [None]
  - HEADACHE [None]
  - INSOMNIA [None]
  - MALAISE [None]
  - MALIGNANT NEOPLASM PROGRESSION [None]
  - METASTASES TO CENTRAL NERVOUS SYSTEM [None]
  - NAUSEA [None]
  - NECK PAIN [None]
  - PAIN [None]
  - PYREXIA [None]
  - SKIN EXFOLIATION [None]
  - VOMITING [None]
